FAERS Safety Report 9220352 (Version 3)
Quarter: 2013Q2

REPORT INFORMATION
  Report Type: Spontaneous
  Country: JP (occurrence: JP)
  Receive Date: 20130409
  Receipt Date: 20130506
  Transmission Date: 20140414
  Serious: Yes (Other)
  Sender: FDA-Public Use
  Company Number: JP-PFIZER INC-2013109345

PATIENT
  Age: 87 Year
  Sex: Female

DRUGS (7)
  1. AMLODIN [Suspect]
     Indication: HYPERTENSION
     Dosage: 2.5 MG, DAILY
     Route: 048
     Dates: end: 20130329
  2. ALEVIATIN [Suspect]
     Indication: CONVULSION
     Dosage: 200 MG, DAILY
     Route: 048
  3. ALEVIATIN [Suspect]
     Indication: CEREBRAL INFARCTION
  4. TAKEPRON [Concomitant]
     Indication: GASTROOESOPHAGEAL REFLUX DISEASE
     Dosage: 15 MG, 1X/DAY
     Route: 048
  5. MAGMITT [Concomitant]
     Indication: CONSTIPATION
     Dosage: 330 MG, 1X/DAY
     Route: 048
  6. ASPIRIN [Concomitant]
     Indication: CEREBRAL INFARCTION
     Dosage: 100 MG, 1X/DAY
     Route: 048
  7. DORNER [Concomitant]
     Indication: PERIPHERAL ARTERIAL OCCLUSIVE DISEASE
     Dosage: 60 UG, 1X/DAY
     Route: 048

REACTIONS (1)
  - Sinus arrest [Recovering/Resolving]
